FAERS Safety Report 10191123 (Version 3)
Quarter: 2014Q2

REPORT INFORMATION
  Report Type: Spontaneous
  Country: FR (occurrence: FR)
  Receive Date: 20140523
  Receipt Date: 20140616
  Transmission Date: 20141212
  Serious: Yes (Life-Threatening, Hospitalization, Other)
  Sender: FDA-Public Use
  Company Number: FR-SA-2014SA061208

PATIENT
  Age: 5 Year
  Sex: Female
  Weight: 21 kg

DRUGS (6)
  1. CEREZYME [Suspect]
     Indication: GAUCHER^S DISEASE
     Route: 042
     Dates: start: 20110302
  2. MICROPAKINE [Concomitant]
     Indication: EPILEPSY
  3. RIVOTRIL [Concomitant]
     Indication: EPILEPSY
  4. AMBROXOL [Concomitant]
     Indication: EPILEPSY
  5. EPITOMAX [Concomitant]
     Indication: EPILEPSY
  6. KEPPRA [Concomitant]
     Indication: EPILEPSY

REACTIONS (8)
  - Septic shock [Recovered/Resolved]
  - Hypotension [Recovered/Resolved]
  - Tachycardia [Recovered/Resolved]
  - Inflammation [Recovered/Resolved]
  - Somnolence [Recovered/Resolved]
  - Peripheral coldness [Recovered/Resolved]
  - Hypersensitivity [Unknown]
  - Pyrexia [Unknown]
